FAERS Safety Report 5558150-2 (Version None)
Quarter: 2007Q4

REPORT INFORMATION
  Report Type: 
  Country: None (occurrence: None)
  Receive Date: 20071214
  Receipt Date: 20071206
  Transmission Date: 20080405
  Serious: Yes (Hospitalization)
  Sender: FDA-Public Use
  Company Number: DE-ROCHE-535431

PATIENT
  Age: 41 Year
  Sex: Female
  Weight: 61.8 kg

DRUGS (4)
  1. PEG-INTERFERON ALFA 2A (RO 25-8310) [Suspect]
     Route: 058
     Dates: start: 20060606, end: 20070816
  2. RIBAVIRIN [Suspect]
     Route: 048
     Dates: start: 20060606
  3. AMANTADINE HCL [Suspect]
     Dosage: DRUG NAME NOT LEGIBLE - NAME TAKEN FROM PROTOCOL FREQUENCY REPORTED AS 2X100
     Route: 048
     Dates: start: 20060606, end: 20070815
  4. L-THYROXINE [Concomitant]
     Dates: start: 20030101

REACTIONS (1)
  - CORONARY ARTERY DISEASE [None]
